FAERS Safety Report 18704099 (Version 2)
Quarter: 2021Q1

REPORT INFORMATION
  Report Type: Report from Study
  Country: None (occurrence: US)
  Receive Date: 20210106
  Receipt Date: 20210120
  Transmission Date: 20210419
  Serious: Yes (Other)
  Sender: FDA-Public Use
  Company Number: US-ABBVIE-20K-163-3677849-00

PATIENT
  Age: 60 Year
  Sex: Female

DRUGS (2)
  1. HUMIRA [Suspect]
     Active Substance: ADALIMUMAB
     Indication: RHEUMATOID ARTHRITIS
  2. HUMIRA [Suspect]
     Active Substance: ADALIMUMAB
     Indication: ANKYLOSING SPONDYLITIS
     Dosage: CITRATE FREE
     Route: 058

REACTIONS (9)
  - Paranasal sinus hyposecretion [Unknown]
  - Nausea [Unknown]
  - Sinusitis fungal [Unknown]
  - Nasal septum deviation [Unknown]
  - Thyroid mass [Unknown]
  - Throat irritation [Unknown]
  - Dry throat [Unknown]
  - Sinusitis [Unknown]
  - Sinus congestion [Unknown]

NARRATIVE: CASE EVENT DATE: 20201230
